FAERS Safety Report 9921552 (Version 1)
Quarter: 2014Q1

REPORT INFORMATION
  Report Type: Spontaneous
  Country: US (occurrence: US)
  Receive Date: 20140225
  Receipt Date: 20140225
  Transmission Date: 20141002
  Serious: No
  Sender: FDA-Public Use
  Company Number: US-PFIZER INC-2014051447

PATIENT
  Age: 50 Year
  Sex: 0

DRUGS (8)
  1. NEURONTIN [Suspect]
     Dosage: UNK
  2. ZOLOFT [Suspect]
     Dosage: UNK
  3. XYLOCAINE [Suspect]
     Dosage: UNK
  4. VICODIN [Suspect]
     Dosage: UNK
  5. ELAVIL [Suspect]
     Dosage: UNK
  6. DARVOCET [Suspect]
     Dosage: UNK
  7. PAXIL [Suspect]
     Dosage: UNK
  8. VYTORIN [Suspect]
     Dosage: UNK

REACTIONS (1)
  - Drug hypersensitivity [Unknown]
